FAERS Safety Report 8525215-2 (Version None)
Quarter: 2012Q3

REPORT INFORMATION
  Report Type: 
  Country: None (occurrence: None)
  Receive Date: 20120720
  Receipt Date: 20120716
  Transmission Date: 20120928
  Serious: Yes (Hospitalization, Other)
  Sender: FDA-Public Use
  Company Number: PHHY2010BR67202

PATIENT
  Sex: Female
  Weight: 54 kg

DRUGS (8)
  1. ALENDRONATE SODIUM [Concomitant]
     Indication: OSTEOPOROSIS
     Dosage: 1 DF, QW
     Route: 048
  2. CLONAZEPAM [Concomitant]
     Indication: SLEEP DISORDER
     Dosage: 0.5 DF, QD
     Route: 048
  3. SEROQUEL [Concomitant]
     Indication: DEMENTIA ALZHEIMER'S TYPE
     Dosage: 1 DF, QD
     Route: 048
  4. ASPIRIN [Concomitant]
     Dosage: 1 DF, QD
     Route: 048
  5. METHOTREXATE [Concomitant]
     Indication: RHEUMATOID ARTHRITIS
     Dosage: 1 DF, QW
     Route: 048
  6. ETANERCEPT [Concomitant]
     Indication: RHEUMATOID ARTHRITIS
     Dosage: 1 DF, QW
     Route: 058
  7. OS-CAL D [Concomitant]
     Indication: OSTEOPOROSIS
     Dosage: 1 DF, BID
     Route: 048
  8. EXELON [Suspect]
     Indication: DEMENTIA ALZHEIMER'S TYPE
     Dosage: 3 DF DAILY
     Route: 048
     Dates: start: 20100101, end: 20100101

REACTIONS (8)
  - LOSS OF CONSCIOUSNESS [None]
  - DIZZINESS [None]
  - VOMITING [None]
  - CEREBROVASCULAR ACCIDENT [None]
  - CEREBRAL ISCHAEMIA [None]
  - BLOOD PRESSURE INCREASED [None]
  - HEADACHE [None]
  - CONVULSION [None]
